FAERS Safety Report 10077911 (Version 3)
Quarter: 2015Q2

REPORT INFORMATION
  Report Type: Report from Study
  Country: FR (occurrence: FR)
  Receive Date: 20140415
  Receipt Date: 20150626
  Transmission Date: 20150821
  Serious: Yes (Other)
  Sender: FDA-Public Use
  Company Number: FR-UCBSA-117733

PATIENT
  Sex: Female
  Weight: 55 kg

DRUGS (1)
  1. CERTOLIZUMAB PEGOL RA [Suspect]
     Active Substance: CERTOLIZUMAB PEGOL
     Indication: RHEUMATOID ARTHRITIS
     Dosage: 200 MG, EV 2 WEEKS(QOW)
     Route: 058
     Dates: start: 20121130, end: 201301

REACTIONS (4)
  - Oral herpes [Unknown]
  - Sinusitis [Recovered/Resolved]
  - Urinary tract infection [Unknown]
  - Pyelonephritis [Recovered/Resolved]

NARRATIVE: CASE EVENT DATE: 201301
